FAERS Safety Report 22353312 (Version 1)
Quarter: 2023Q2

REPORT INFORMATION
  Report Type: Other
  Country: TR (occurrence: None)
  Receive Date: 20230523
  Receipt Date: 20230523
  Transmission Date: 20230722
  Serious: Yes (Hospitalization)
  Sender: FDA-Public Use
  Company Number: TR-ROCHE-3353377

PATIENT
  Age: 26 Year
  Sex: Male

DRUGS (5)
  1. MYCOPHENOLATE MOFETIL [Suspect]
     Active Substance: MYCOPHENOLATE MOFETIL
     Indication: Proteinuria
     Route: 065
     Dates: start: 202104, end: 202111
  2. PREDNISOLONE [Suspect]
     Active Substance: PREDNISOLONE
     Indication: Proteinuria
     Route: 065
     Dates: end: 202111
  3. PREDNISOLONE [Suspect]
     Active Substance: PREDNISOLONE
     Route: 065
  4. RAMIPRIL [Concomitant]
     Active Substance: RAMIPRIL
  5. TOZINAMERAN [Concomitant]
     Active Substance: TOZINAMERAN
     Dosage: LAST ONE GIVEN IN JUN/2021

REACTIONS (2)
  - COVID-19 [Recovering/Resolving]
  - Anti-neutrophil cytoplasmic antibody positive vasculitis [Recovered/Resolved]
